FAERS Safety Report 7628718-8 (Version None)
Quarter: 2011Q3

REPORT INFORMATION
  Report Type: 
  Country: None (occurrence: None)
  Receive Date: 20110722
  Receipt Date: 20110712
  Transmission Date: 20111222
  Serious: Yes (Hospitalization, Other)
  Sender: FDA-Public Use
  Company Number: US-JNJFOC-20110610710

PATIENT
  Sex: Male
  Weight: 92.08 kg

DRUGS (7)
  1. STELARA [Suspect]
     Indication: PSORIASIS
     Route: 058
     Dates: start: 20110510
  2. STELARA [Suspect]
     Route: 058
     Dates: start: 20101120
  3. STELARA [Suspect]
     Route: 058
     Dates: start: 20110412
  4. STELARA [Suspect]
     Indication: PSORIATIC ARTHROPATHY
     Route: 058
     Dates: start: 20110412
  5. STELARA [Suspect]
     Route: 058
     Dates: start: 20110510
  6. STELARA [Suspect]
     Route: 058
     Dates: start: 20101120
  7. LISINOPRIL [Concomitant]
     Indication: HYPERTENSION
     Route: 048
     Dates: start: 20100301

REACTIONS (2)
  - INFECTION [None]
  - TOOTH ABSCESS [None]
